FAERS Safety Report 6310819-8 (Version None)
Quarter: 2009Q3

REPORT INFORMATION
  Report Type: 
  Country: None (occurrence: None)
  Receive Date: 20090812
  Receipt Date: 20090803
  Transmission Date: 20100115
  Serious: Yes (Hospitalization)
  Sender: FDA-Public Use
  Company Number: MPS1-1000231

PATIENT
  Age: 19 Year
  Sex: Male
  Weight: 66 kg

DRUGS (1)
  1. ALDURAZYME [Suspect]
     Indication: MUCOPOLYSACCHARIDOSIS I
     Dosage: 37.7 MG, Q2W, INTRAVENOUS
     Route: 042
     Dates: start: 20031028

REACTIONS (5)
  - BACK PAIN [None]
  - BACTERIAL INFECTION [None]
  - BONE CYST [None]
  - BONE GRAFT [None]
  - PNEUMONIA VIRAL [None]
